FAERS Safety Report 19825816 (Version 1)
Quarter: 2021Q3

REPORT INFORMATION
  Report Type: Spontaneous
  Country: IT (occurrence: IT)
  Receive Date: 20210914
  Receipt Date: 20210914
  Transmission Date: 20211014
  Serious: Yes (Other)
  Sender: FDA-Public Use
  Company Number: IT-AUROBINDO-AUR-APL-2021-039028

PATIENT
  Age: 57 Year
  Sex: Male

DRUGS (8)
  1. FLUDARABINE [Concomitant]
     Active Substance: FLUDARABINE PHOSPHATE
     Indication: PRODUCT USED FOR UNKNOWN INDICATION
     Dosage: 30 MILLIGRAM/SQ. METER, DAILY ON DAYS 6 TO 2
     Route: 065
  2. COTRIMOXAZOLE [Suspect]
     Active Substance: SULFAMETHOXAZOLE\TRIMETHOPRIM
     Indication: GRAFT VERSUS HOST DISEASE
     Dosage: UNK
     Route: 065
  3. ACICLOVIR [Suspect]
     Active Substance: ACYCLOVIR
     Indication: GRAFT VERSUS HOST DISEASE
     Dosage: UNK
     Route: 065
  4. CYCLOPHOSPHAMIDE. [Suspect]
     Active Substance: CYCLOPHOSPHAMIDE
     Indication: PRODUCT USED FOR UNKNOWN INDICATION
     Dosage: 50 MILLIGRAM/KILOGRAM, DAILY
     Route: 065
  5. SIROLIMUS. [Suspect]
     Active Substance: SIROLIMUS
     Indication: GRAFT VERSUS HOST DISEASE
     Dosage: UNK
     Route: 065
  6. TREOSULFAN [Concomitant]
     Active Substance: TREOSULFAN
     Indication: PRODUCT USED FOR UNKNOWN INDICATION
     Dosage: 14000 MILLIGRAM/SQ. METER ON DAYS 6 TO 4
     Route: 065
  7. LETERMOVIR [Suspect]
     Active Substance: LETERMOVIR
     Indication: GRAFT VERSUS HOST DISEASE
     Dosage: UNK
     Route: 065
  8. POSACONAZOLE [Suspect]
     Active Substance: POSACONAZOLE
     Indication: GRAFT VERSUS HOST DISEASE
     Dosage: UNK
     Route: 065

REACTIONS (6)
  - Cytomegalovirus infection reactivation [Unknown]
  - Product use in unapproved indication [Unknown]
  - Adenovirus reactivation [Unknown]
  - Septic shock [Unknown]
  - Herpes virus infection [Unknown]
  - Gastritis [Unknown]
